FAERS Safety Report 9786210 (Version 1)
Quarter: 2013Q4

REPORT INFORMATION
  Report Type: Spontaneous
  Country: AT (occurrence: None)
  Receive Date: 20131223
  Receipt Date: 20131223
  Transmission Date: 20140711
  Serious: Yes (Other)
  Sender: FDA-Public Use
  Company Number: 2013P1021891

PATIENT
  Age: 82 Year
  Sex: Female

DRUGS (2)
  1. GRANISETRON [Suspect]
     Indication: VOMITING
  2. 5-AZACYTIDINE [Suspect]
     Route: 058

REACTIONS (1)
  - Febrile neutropenia [None]
